FAERS Safety Report 17718579 (Version 2)
Quarter: 2020Q2

REPORT INFORMATION
  Report Type: Spontaneous
  Country: AR (occurrence: AR)
  Receive Date: 20200428
  Receipt Date: 20200512
  Transmission Date: 20200714
  Serious: Yes (Hospitalization)
  Sender: FDA-Public Use
  Company Number: NVSC2020AR111988

PATIENT
  Sex: Female

DRUGS (5)
  1. REVOLADE [Suspect]
     Active Substance: ELTROMBOPAG
     Dosage: 3 DF, QD (3 X 25 MG) (15 DAYS AGO)(DAILY)
     Route: 065
  2. REVOLADE [Suspect]
     Active Substance: ELTROMBOPAG
     Dosage: 1 DF, QD
     Route: 065
     Dates: start: 201703
  3. REVOLADE [Suspect]
     Active Substance: ELTROMBOPAG
     Indication: IMMUNE THROMBOCYTOPENIA
     Dosage: 2 DF, QD (2 X 25 MG) (3 YEARS AGO)(DAILY)
     Route: 065
     Dates: start: 201702, end: 201703
  4. REVOLADE [Suspect]
     Active Substance: ELTROMBOPAG
     Dosage: 2 DF, QD
     Route: 065
  5. REVOLADE [Suspect]
     Active Substance: ELTROMBOPAG
     Dosage: 3 DF, QD (3 X 25 MG) (3 YEARS AGO)(DAILY)
     Route: 065

REACTIONS (10)
  - Movement disorder [Unknown]
  - Epistaxis [Recovering/Resolving]
  - Platelet count decreased [Recovering/Resolving]
  - Pain [Recovered/Resolved]
  - Anxiety [Recovered/Resolved]
  - Leiomyoma [Unknown]
  - Abdominal pain upper [Unknown]
  - Nasal congestion [Unknown]
  - Gait disturbance [Unknown]
  - Headache [Unknown]
